FAERS Safety Report 6832924-X (Version None)
Quarter: 2010Q3

REPORT INFORMATION
  Report Type: 
  Country: None (occurrence: None)
  Receive Date: 20100712
  Receipt Date: 20100630
  Transmission Date: 20110219
  Serious: Yes (Other)
  Sender: FDA-Public Use
  Company Number: US-AMGEN-KDL408998

PATIENT
  Age: 67 Year
  Sex: Female

DRUGS (8)
  1. NEUPOGEN [Suspect]
     Indication: CHEMOTHERAPY
     Dates: start: 20100410
  2. VITAMINS [Concomitant]
  3. UNSPECIFIED PAIN MEDICATION [Concomitant]
  4. ZOFRAN [Concomitant]
  5. DECADRON [Concomitant]
  6. FLUOROURACIL [Concomitant]
     Dates: start: 20100406
  7. LEUCOVORIN CALCIUM [Concomitant]
     Dates: start: 20100406
  8. OXALIPLATIN [Concomitant]
     Dates: start: 20100406

REACTIONS (7)
  - EXPIRED DRUG ADMINISTERED [None]
  - HYPERHIDROSIS [None]
  - INFLUENZA LIKE ILLNESS [None]
  - NAUSEA [None]
  - RESTLESSNESS [None]
  - VOMITING [None]
  - WHITE BLOOD CELL COUNT ABNORMAL [None]
